FAERS Safety Report 22630096 (Version 1)
Quarter: 2023Q2

REPORT INFORMATION
  Report Type: Spontaneous
  Country: FR (occurrence: FR)
  Receive Date: 20230622
  Receipt Date: 20230622
  Transmission Date: 20230721
  Serious: Yes (Hospitalization)
  Sender: FDA-Public Use
  Company Number: FR-MEDEXUS PHARMA, INC.-2023MED00222

PATIENT
  Age: 63 Year
  Sex: Female

DRUGS (2)
  1. METHOTREXATE [Suspect]
     Active Substance: METHOTREXATE
     Indication: Polymyalgia rheumatica
     Dosage: UNK, 1X/WEEK; ^LOW DOSE^
  2. CORTICOSTEROID NOS [Concomitant]
     Active Substance: CORTICOSTEROID NOS
     Indication: Polymyalgia rheumatica

REACTIONS (6)
  - Dysplasia [Unknown]
  - Pancytopenia [Unknown]
  - Acute kidney injury [Unknown]
  - Sepsis [Unknown]
  - Mucosal inflammation [Unknown]
  - Bone marrow failure [Unknown]
